FAERS Safety Report 14470791 (Version 3)
Quarter: 2018Q1

REPORT INFORMATION
  Report Type: Report from Study
  Country: US (occurrence: US)
  Receive Date: 20180131
  Receipt Date: 20180227
  Transmission Date: 20180509
  Serious: Yes (Hospitalization)
  Sender: FDA-Public Use
  Company Number: US-ACTELION-A-NJ2018-166265

PATIENT
  Age: 48 Year
  Sex: Female
  Weight: 79.37 kg

DRUGS (7)
  1. UPTRAVI [Suspect]
     Active Substance: SELEXIPAG
     Dosage: 800 MCG, BID
     Route: 048
  2. UPTRAVI [Suspect]
     Active Substance: SELEXIPAG
     Dosage: 1600 UNK, UNK
     Route: 048
  3. WARFARIN [Concomitant]
     Active Substance: WARFARIN
  4. ADEMPAS [Concomitant]
     Active Substance: RIOCIGUAT
  5. LETAIRIS [Suspect]
     Active Substance: AMBRISENTAN
     Indication: PRODUCT USED FOR UNKNOWN INDICATION
     Dosage: 10 MG, QD
     Route: 048
     Dates: start: 20130925
  6. UPTRAVI [Suspect]
     Active Substance: SELEXIPAG
     Indication: PULMONARY ARTERIAL PRESSURE INCREASED
     Dosage: 1000 MCG, BID
     Route: 048
  7. UPTRAVI [Suspect]
     Active Substance: SELEXIPAG
     Dosage: UNK
     Route: 048

REACTIONS (9)
  - Palpitations [Not Recovered/Not Resolved]
  - Flatulence [Unknown]
  - Pain in extremity [Unknown]
  - Fluid retention [Unknown]
  - Nausea [Unknown]
  - Abdominal discomfort [Unknown]
  - Limb discomfort [Unknown]
  - Abdominal distension [Not Recovered/Not Resolved]
  - Renal impairment [Not Recovered/Not Resolved]
